FAERS Safety Report 19826665 (Version 1)
Quarter: 2021Q3

REPORT INFORMATION
  Report Type: Spontaneous
  Country: US (occurrence: US)
  Receive Date: 20210914
  Receipt Date: 20210914
  Transmission Date: 20211014
  Serious: No
  Sender: FDA-Public Use
  Company Number: US-SA-2021SA300052

PATIENT
  Sex: Female

DRUGS (2)
  1. CLINDAMYCIN. [Concomitant]
     Active Substance: CLINDAMYCIN
     Indication: FURUNCLE
  2. RIFADIN [Suspect]
     Active Substance: RIFAMPIN
     Indication: FURUNCLE

REACTIONS (1)
  - Furuncle [Unknown]
